FAERS Safety Report 15725002 (Version 2)
Quarter: 2018Q4

REPORT INFORMATION
  Report Type: Spontaneous
  Country: AR (occurrence: AR)
  Receive Date: 20181214
  Receipt Date: 20181221
  Transmission Date: 20190205
  Serious: Yes (Death, Hospitalization, Other)
  Sender: FDA-Public Use
  Company Number: AR-SPECTRUM PHARMACEUTICALS, INC.-18-B-AR-00455

PATIENT
  Age: 57 Year
  Sex: Male
  Weight: 95 kg

DRUGS (3)
  1. BELEODAQ [Suspect]
     Active Substance: BELINOSTAT
     Dosage: 2000 MG DAILY FOR 5 DAYS
     Route: 042
     Dates: start: 20181010, end: 20181014
  2. BELEODAQ [Suspect]
     Active Substance: BELINOSTAT
     Dosage: 2000 MG DAILY FOR 5 DAYS
     Route: 042
     Dates: start: 20181031, end: 20181104
  3. BELEODAQ [Suspect]
     Active Substance: BELINOSTAT
     Indication: NON-HODGKIN^S LYMPHOMA
     Dosage: 2000 MG DAILY FOR 5 DAYS
     Route: 042
     Dates: start: 20180919, end: 20180923

REACTIONS (6)
  - Septic shock [Recovered/Resolved]
  - Disease progression [Fatal]
  - Renal failure [Unknown]
  - Cellulitis [Unknown]
  - Ascites [Unknown]
  - Neutropenia [Unknown]

NARRATIVE: CASE EVENT DATE: 20181113
